FAERS Safety Report 17413107 (Version 1)
Quarter: 2020Q1

REPORT INFORMATION
  Report Type: Spontaneous
  Country: US (occurrence: US)
  Receive Date: 20200213
  Receipt Date: 20200213
  Transmission Date: 20200409
  Serious: Yes (Hospitalization)
  Sender: FDA-Public Use
  Company Number: US-STRIDES ARCOLAB LIMITED-2020SP001240

PATIENT
  Age: 11 Month
  Sex: Female

DRUGS (3)
  1. FLUCONAZOLE. [Concomitant]
     Active Substance: FLUCONAZOLE
     Indication: DERMATITIS DIAPER
     Dosage: UNK
     Route: 048
  2. NYSTATIN                           /00982301/ [Concomitant]
     Indication: DERMATITIS DIAPER
     Dosage: UNK
     Route: 061
  3. LIDOCAINE. [Suspect]
     Active Substance: LIDOCAINE
     Indication: DERMATITIS DIAPER
     Dosage: UNK
     Route: 061

REACTIONS (4)
  - Status epilepticus [Recovered/Resolved]
  - Toxicity to various agents [Unknown]
  - Unresponsive to stimuli [Recovered/Resolved]
  - Generalised tonic-clonic seizure [Recovered/Resolved]
